FAERS Safety Report 21022312 (Version 1)
Quarter: 2022Q2

REPORT INFORMATION
  Report Type: Spontaneous
  Country: US (occurrence: US)
  Receive Date: 20220629
  Receipt Date: 20220629
  Transmission Date: 20220721
  Serious: No
  Sender: FDA-Public Use
  Company Number: US-ALM-HQ-US-2022-1086

PATIENT
  Age: 55 Year
  Sex: Female

DRUGS (3)
  1. TIRBANIBULIN [Suspect]
     Active Substance: TIRBANIBULIN
     Indication: Cervical dysplasia
     Dosage: COURSE 1: 5-NIGHT APPLICATION
  2. TIRBANIBULIN [Suspect]
     Active Substance: TIRBANIBULIN
     Dosage: COURSE 2: 5-NIGHT APPLICATION
  3. TIRBANIBULIN [Suspect]
     Active Substance: TIRBANIBULIN
     Dosage: COURSE 3: 5-NIGHT APPLICATION

REACTIONS (3)
  - Off label use [Unknown]
  - Application site erythema [Unknown]
  - Application site exfoliation [Unknown]
